FAERS Safety Report 17847374 (Version 1)
Quarter: 2020Q2

REPORT INFORMATION
  Report Type: Spontaneous
  Country: US (occurrence: US)
  Receive Date: 20200601
  Receipt Date: 20200601
  Transmission Date: 20200714
  Serious: Yes (Other)
  Sender: FDA-Public Use
  Company Number: US-009507513-2005USA009733

PATIENT
  Age: 24 Year
  Sex: Female
  Weight: 95.69 kg

DRUGS (1)
  1. NEXPLANON [Suspect]
     Active Substance: ETONOGESTREL
     Dosage: 1 ROD EVERY 3 YEARS
     Route: 059
     Dates: start: 201704

REACTIONS (3)
  - Incorrect product administration duration [Unknown]
  - Complication associated with device [Recovered/Resolved]
  - Device dislocation [Not Recovered/Not Resolved]

NARRATIVE: CASE EVENT DATE: 20200420
